FAERS Safety Report 16996964 (Version 1)
Quarter: 2019Q4

REPORT INFORMATION
  Report Type: Spontaneous
  Country: GB (occurrence: GB)
  Receive Date: 20191106
  Receipt Date: 20191106
  Transmission Date: 20200122
  Serious: Yes (Other)
  Sender: FDA-Public Use
  Company Number: GB-ROCHE-2453242

PATIENT
  Age: 24 Year
  Sex: Female

DRUGS (1)
  1. HERCEPTIN [Suspect]
     Active Substance: TRASTUZUMAB
     Indication: PRODUCT USED FOR UNKNOWN INDICATION
     Route: 065

REACTIONS (9)
  - Neutropenic sepsis [Unknown]
  - Pulmonary thrombosis [Unknown]
  - Pain [Unknown]
  - Chronic fatigue syndrome [Unknown]
  - Fatigue [Unknown]
  - Mental disorder [Unknown]
  - Ill-defined disorder [Unknown]
  - Influenza like illness [Unknown]
  - Anxiety [Unknown]
